FAERS Safety Report 8232800-4 (Version None)
Quarter: 2012Q1

REPORT INFORMATION
  Report Type: 
  Country: None (occurrence: None)
  Receive Date: 20120323
  Receipt Date: 20120314
  Transmission Date: 20120608
  Serious: Yes (Other)
  Sender: FDA-Public Use
  Company Number: US-RB-038356-12

PATIENT
  Age: 56 Year
  Sex: Female

DRUGS (1)
  1. SUBOXONE [Suspect]
     Indication: PRODUCT USED FOR UNKNOWN INDICATION
     Dosage: DOSAGE NOT PROVIDED
     Route: 065

REACTIONS (1)
  - LEUKAEMIA [None]
